FAERS Safety Report 8806729 (Version 1)
Quarter: 2012Q4

REPORT INFORMATION
  Report Type: Spontaneous
  Country: None (occurrence: None)
  Receive Date: 20120919
  Receipt Date: 20120919
  Transmission Date: 20130627
  Serious: Yes (Other)
  Sender: FDA-Public Use
  Company Number: AUR-APL-2012-03967

PATIENT
  Age: 83 Year
  Sex: Female

DRUGS (14)
  1. AMOXICILLIN AND CLAVULANIC ACID [Suspect]
     Indication: URINARY TRACT INFECTION
     Dosage: 3.6 gm (1.2 gm, 3 in 1 D),  Intravenous bolus
     Route: 040
     Dates: start: 20120818, end: 20120819
  2. AMOXICILLIN AND CLAVULANIC ACID [Suspect]
     Indication: URINARY TRACT INFECTION
     Dosage: 1875 mg (625 mg. 3 in 1 D), Oral
     Route: 048
     Dates: start: 20120820, end: 20120821
  3. OMEPRAZOLE [Suspect]
     Route: 048
     Dates: end: 20120821
  4. EPILIM [Suspect]
     Dosage: 400 mg  (200 mg, 2 in 1 D), oral
     Route: 048
     Dates: start: 20120819, end: 20120821
  5. PHENYTOIN [Suspect]
     Dosage: 750 mg ( 750 mg, 1 in 1 Total),  intravenous drip
     Route: 041
     Dates: start: 20120818, end: 20120818
  6. GENTICIN [Suspect]
     Dosage: 240 mg (240 mg, 1 in 1 Total), intravenous drip
     Route: 041
     Dates: start: 20120818, end: 20120818
  7. BUTRANS (BUPRENORPHINE) [Concomitant]
  8. MOVICOL [Concomitant]
  9. PROTELOS (STRONTIUM RANELATE) [Concomitant]
  10. SENNA (SENNA ALEXANDRINA) [Concomitant]
  11. TRIMETHOPRIM [Concomitant]
  12. EBIXA (MEMANTINE HYDROCHLORIDE) [Concomitant]
  13. CALCEOS (LEKOVIT CA) [Concomitant]
  14. PARACETAMOL [Concomitant]

REACTIONS (1)
  - Grand mal convulsion [None]
